FAERS Safety Report 6996917-4 (Version None)
Quarter: 2010Q3

REPORT INFORMATION
  Report Type: 
  Country: None (occurrence: None)
  Receive Date: 20100918
  Receipt Date: 20090724
  Transmission Date: 20110219
  Serious: No
  Sender: FDA-Public Use
  Company Number: US-WYE-H10328809

PATIENT
  Age: 11 Year
  Sex: Female
  Weight: 29.51 kg

DRUGS (1)
  1. ALAVERT [Suspect]
     Indication: HYPERSENSITIVITY
     Dosage: ONE TABLET AS NEEDED
     Route: 048
     Dates: start: 20080101

REACTIONS (1)
  - RASH PAPULAR [None]
